FAERS Safety Report 24260225 (Version 1)
Quarter: 2024Q3

REPORT INFORMATION
  Report Type: Report from Study
  Country: US (occurrence: US)
  Receive Date: 20240828
  Receipt Date: 20240828
  Transmission Date: 20241017
  Serious: Yes (Other)
  Sender: HLS THERAPEUTICS
  Company Number: US-HLS-202400875

PATIENT

DRUGS (1)
  1. CLOZAPINE [Suspect]
     Active Substance: CLOZAPINE
     Indication: Schizoaffective disorder
     Dosage: 225 MG AT BEDTIME
     Route: 065

REACTIONS (4)
  - Neutrophil count increased [Unknown]
  - COVID-19 [Unknown]
  - Platelet count increased [Unknown]
  - White blood cell count increased [Unknown]
